FAERS Safety Report 11315381 (Version 1)
Quarter: 2015Q3

REPORT INFORMATION
  Report Type: Spontaneous
  Country: CA (occurrence: CA)
  Receive Date: 20150727
  Receipt Date: 20150727
  Transmission Date: 20151125
  Serious: Yes (Other)
  Sender: FDA-Public Use
  Company Number: CA-JNJFOC-20150710923

PATIENT
  Age: 16 Year
  Weight: 44.91 kg

DRUGS (2)
  1. HYDROCODONE [Suspect]
     Active Substance: HYDROCODONE
     Indication: PRODUCT USED FOR UNKNOWN INDICATION
     Route: 048
  2. EXTRA STRENGTH TYLENOL PM [Suspect]
     Active Substance: ACETAMINOPHEN\DIPHENHYDRAMINE HYDROCHLORIDE
     Indication: PRODUCT USED FOR UNKNOWN INDICATION
     Dosage: 4100 MG OF ACETAMINOPHEN AND 175 MG OF DIPHENHYDRAMINE HCL
     Route: 048

REACTIONS (3)
  - Intentional product use issue [None]
  - Suicide attempt [Unknown]
  - Extra dose administered [Unknown]
